FAERS Safety Report 5615874-6 (Version None)
Quarter: 2008Q1

REPORT INFORMATION
  Report Type: 
  Country: None (occurrence: None)
  Receive Date: 20080201
  Receipt Date: 20080117
  Transmission Date: 20080703
  Serious: Yes (Other)
  Sender: FDA-Public Use
  Company Number: DSA_31340_2008

PATIENT
  Age: 70 Year
  Sex: Female

DRUGS (2)
  1. TAVOR /00273201/ (TAVOR - LORAZEPAM) (1 MG, 2 MG) [Suspect]
     Indication: DEPRESSION
     Dosage: (1 MG QD ORAL), (2 MG QD ORAL)
     Route: 048
     Dates: start: 19870101
  2. TAVOR /00273201/ (TAVOR - LORAZEPAM) (1 MG, 2 MG) [Suspect]
     Indication: RESTLESSNESS
     Dosage: (1 MG QD ORAL), (2 MG QD ORAL)
     Route: 048
     Dates: start: 19870101

REACTIONS (2)
  - ABDOMINAL PAIN UPPER [None]
  - DRUG DEPENDENCE [None]
